FAERS Safety Report 7505959-1 (Version None)
Quarter: 2011Q2

REPORT INFORMATION
  Report Type: 
  Country: None (occurrence: None)
  Receive Date: 20110526
  Receipt Date: 20110513
  Transmission Date: 20111010
  Serious: Yes (Hospitalization)
  Sender: FDA-Public Use
  Company Number: ES-ROCHE-777280

PATIENT
  Sex: Female
  Weight: 77 kg

DRUGS (10)
  1. INDAPAMIDA [Concomitant]
     Dates: end: 20110513
  2. ATORVASTATINA [Concomitant]
  3. OXALIPLATIN [Suspect]
     Dosage: LAST DOSE PRIOR TO SAE: ON 06 MAY 2011
     Route: 042
     Dates: start: 20110415
  4. AMITRIPTILINA [Concomitant]
     Dates: start: 20030219
  5. CAPECITABINE [Suspect]
     Dosage: LAST DOSE PRIOR TO SAE: 12 MAY 2011, TEMPORARILY INTERRUPTED; FREQUENCY: DAY 1-14 CYCLE.
     Route: 048
     Dates: start: 20110415, end: 20110513
  6. INSULINA [Concomitant]
     Dates: start: 20100604
  7. BEVACIZUMAB [Suspect]
     Dosage: LAST DOSE PRIOR TO SAE: ON 06 MAY 2011
     Route: 042
     Dates: start: 20110415
  8. DAFLON [Concomitant]
  9. NEBIVOLOL HCL [Concomitant]
     Dates: end: 20110513
  10. EZETIMIBE [Concomitant]

REACTIONS (2)
  - GENERAL PHYSICAL HEALTH DETERIORATION [None]
  - HYPOTENSION [None]
